FAERS Safety Report 24309319 (Version 2)
Quarter: 2024Q4

REPORT INFORMATION
  Report Type: Report from Study
  Country: CA (occurrence: CA)
  Receive Date: 20240911
  Receipt Date: 20241008
  Transmission Date: 20250115
  Serious: Yes (Other)
  Sender: BIOGEN
  Company Number: CA-BIOGEN-2024BI01269453

PATIENT
  Sex: Male

DRUGS (3)
  1. TYSABRI [Suspect]
     Active Substance: NATALIZUMAB
     Indication: Multiple sclerosis
     Route: 050
     Dates: start: 20240515
  2. TYSABRI [Suspect]
     Active Substance: NATALIZUMAB
     Route: 050
     Dates: start: 20240515
  3. VARICELLA-ZOSTER VACCINE NOS [Suspect]
     Active Substance: VARICELLA-ZOSTER VACCINE
     Indication: Antiviral prophylaxis
     Route: 050
     Dates: start: 20240708, end: 20240708

REACTIONS (9)
  - Neurogenic shock [Recovered/Resolved]
  - Irritability [Not Recovered/Not Resolved]
  - Hypoaesthesia [Unknown]
  - Immunisation reaction [Recovered/Resolved]
  - Muscular weakness [Unknown]
  - Stress [Unknown]
  - Nausea [Recovered/Resolved]
  - Headache [Recovered/Resolved]
  - Fatigue [Recovered/Resolved]

NARRATIVE: CASE EVENT DATE: 20240101
